FAERS Safety Report 5164569-4 (Version None)
Quarter: 2006Q4

REPORT INFORMATION
  Report Type: 
  Country: None (occurrence: None)
  Receive Date: 20061205
  Receipt Date: 20060724
  Transmission Date: 20070319
  Serious: Yes (Hospitalization)
  Sender: FDA-Public Use
  Company Number: HQWYE388426JUL06

PATIENT
  Sex: Female

DRUGS (5)
  1. ENBREL [Suspect]
     Indication: RHEUMATOID ARTHRITIS
     Route: 058
     Dates: start: 20060516, end: 20060620
  2. FOLIAMIN [Concomitant]
     Route: 048
     Dates: start: 20060425, end: 20060623
  3. PREDNISOLONE [Concomitant]
     Route: 048
     Dates: start: 20060425, end: 20060601
  4. RHEUMATREX [Concomitant]
     Indication: RHEUMATOID ARTHRITIS
     Dosage: UNKNOWN
     Route: 048
     Dates: start: 20060425, end: 20060623
  5. MOBIC [Concomitant]
     Route: 048
     Dates: start: 20060425, end: 20060623

REACTIONS (2)
  - CONDITION AGGRAVATED [None]
  - SYSTEMIC LUPUS ERYTHEMATOSUS [None]
